FAERS Safety Report 17489115 (Version 2)
Quarter: 2020Q2

REPORT INFORMATION
  Report Type: Spontaneous
  Country: DE (occurrence: DE)
  Receive Date: 20200303
  Receipt Date: 20200427
  Transmission Date: 20200713
  Serious: Yes (Other)
  Sender: FDA-Public Use
  Company Number: DE-MYLANLABS-2020M1022566

PATIENT
  Age: 60 Year
  Sex: Male
  Weight: 98 kg

DRUGS (17)
  1. UROREC [Concomitant]
     Active Substance: SILODOSIN
     Dosage: UNK (0-0-1-0)
     Dates: start: 20190402
  2. METAMIZOL                          /06276701/ [Concomitant]
     Active Substance: METAMIZOLE
     Indication: PAIN
     Dosage: 30 GTT DROPS, PRN
  3. SIMVA [Concomitant]
     Active Substance: SIMVASTATIN
     Dosage: UNK
     Dates: start: 20190718
  4. AMOXI                              /00249601/ [Concomitant]
     Active Substance: AMOXICILLIN
     Dosage: UNK
     Dates: start: 20190713
  5. VALSARTAN DURA 320 MG FILMTABLETTEN [Suspect]
     Active Substance: VALSARTAN
     Indication: BLOOD PRESSURE MEASUREMENT
     Dosage: 320 MILLIGRAM, QD
     Route: 048
     Dates: start: 20181025
  6. VALSARTAN DURA 320 MG FILMTABLETTEN [Suspect]
     Active Substance: VALSARTAN
     Dosage: 320 MILLIGRAM, QD
     Route: 048
     Dates: start: 20190404
  7. THYRONAJOD [Concomitant]
     Active Substance: LEVOTHYROXINE SODIUM\POTASSIUM IODIDE
     Indication: THYROID DISORDER
     Dosage: UNK
  8. AMLODIPIN 1A FARMA [Concomitant]
     Active Substance: AMLODIPINE BESYLATE
     Indication: HYPERTENSION
     Dosage: 1-0-0-0
  9. COLCHICUM DISPERT [Concomitant]
     Indication: BRUCELLOSIS
     Dosage: 2-0-2-0
  10. AMLODIPINE BESILATE [Concomitant]
     Active Substance: AMLODIPINE BESYLATE
     Dosage: UNK
     Dates: start: 20181025
  11. PANTOPRAZOL AL [Concomitant]
     Active Substance: PANTOPRAZOLE SODIUM
     Indication: ABDOMINAL DISCOMFORT
     Dosage: 1-0-0-0
  12. VALSARTAN DURA 320 MG FILMTABLETTEN [Suspect]
     Active Substance: VALSARTAN
     Dosage: 320 MILLIGRAM, QD
     Route: 048
     Dates: start: 20190718
  13. UROREC [Concomitant]
     Active Substance: SILODOSIN
     Indication: BLADDER DISORDER
     Dosage: UNK (0-0-1-0)
     Dates: start: 20181211
  14. IBUFLAM                            /00109201/ [Concomitant]
     Active Substance: IBUPROFEN
     Dosage: UNK
     Dates: start: 20190713
  15. METFORMIN 1A PHARMA [Concomitant]
     Active Substance: METFORMIN HYDROCHLORIDE
     Indication: DIABETES MELLITUS
     Dosage: 1-0-1-0
  16. ASPIRIN. [Concomitant]
     Active Substance: ASPIRIN
     Indication: CARDIOVASCULAR DISORDER
     Dosage: 1-0-0-0
  17. SIMVASTATIN. [Concomitant]
     Active Substance: SIMVASTATIN
     Indication: BLOOD CHOLESTEROL
     Dosage: 0-0-1-0

REACTIONS (4)
  - Mental impairment [Unknown]
  - Visual impairment [Unknown]
  - Quality of life decreased [Unknown]
  - Fear of disease [Unknown]

NARRATIVE: CASE EVENT DATE: 2018
